FAERS Safety Report 20074690 (Version 1)
Quarter: 2021Q4

REPORT INFORMATION
  Report Type: Spontaneous
  Country: US (occurrence: None)
  Receive Date: 20211115
  Receipt Date: 20211115
  Transmission Date: 20220303
  Serious: No
  Sender: FDA-Public Use
  Company Number: None

PATIENT
  Sex: Female

DRUGS (1)
  1. NIFEDIPINE [Suspect]
     Active Substance: NIFEDIPINE
     Indication: Hypertension
     Dosage: FREQUENCY : DAILY;?
     Route: 048
     Dates: start: 20210903, end: 20210926

REACTIONS (7)
  - Adverse drug reaction [None]
  - Sensory disturbance [None]
  - Arthralgia [None]
  - Back pain [None]
  - Headache [None]
  - Fatigue [None]
  - Product complaint [None]

NARRATIVE: CASE EVENT DATE: 20210926
